FAERS Safety Report 6239391-8 (Version None)
Quarter: 2009Q2

REPORT INFORMATION
  Report Type: 
  Country: None (occurrence: None)
  Receive Date: 20090618
  Receipt Date: 20090618
  Transmission Date: 20091009
  Serious: Yes (Other)
  Sender: FDA-Public Use
  Company Number: None

PATIENT
  Sex: Female
  Weight: 108.8633 kg

DRUGS (3)
  1. ZICAM NASAL SPRAY [Suspect]
     Indication: NASAL CONGESTION
     Dosage: NASAL SPRAY 2 NASAL
     Route: 045
     Dates: start: 20060401, end: 20060405
  2. PROZAC [Concomitant]
  3. LIPITOR [Concomitant]

REACTIONS (2)
  - AGEUSIA [None]
  - ANOSMIA [None]
